FAERS Safety Report 10539058 (Version 4)
Quarter: 2016Q3

REPORT INFORMATION
  Report Type: Spontaneous
  Country: US (occurrence: US)
  Receive Date: 20141023
  Receipt Date: 20160929
  Transmission Date: 20161109
  Serious: Yes (Death, Other)
  Sender: FDA-Public Use
  Company Number: US-GLAXOSMITHKLINE-A0815423A

PATIENT
  Sex: Female
  Weight: 72.11 kg

DRUGS (9)
  1. CRESTOR [Concomitant]
     Active Substance: ROSUVASTATIN CALCIUM
  2. ADVAIR HFA [Suspect]
     Active Substance: FLUTICASONE PROPIONATE\SALMETEROL XINAFOATE
     Indication: PERICARDIAL EFFUSION
  3. COREG CR [Suspect]
     Active Substance: CARVEDILOL PHOSPHATE
     Indication: LUNG DISORDER
     Dosage: 20 MG, UNK
     Dates: start: 2007
  4. XANAX [Concomitant]
     Active Substance: ALPRAZOLAM
  5. ADVAIR HFA [Suspect]
     Active Substance: FLUTICASONE PROPIONATE\SALMETEROL XINAFOATE
     Indication: LUNG DISORDER
     Dosage: 1 PUFF(S), BID
     Dates: start: 2007
  6. AMBIEN [Concomitant]
     Active Substance: ZOLPIDEM TARTRATE
  7. ASPIRIN +ASCORBIC ACID +CAFFEINE +MENTHOL [Concomitant]
  8. ADVAIR HFA [Suspect]
     Active Substance: FLUTICASONE PROPIONATE\SALMETEROL XINAFOATE
     Indication: CHRONIC OBSTRUCTIVE PULMONARY DISEASE
  9. COREG CR [Suspect]
     Active Substance: CARVEDILOL PHOSPHATE
     Indication: PERICARDIAL EFFUSION

REACTIONS (9)
  - Aortic occlusion [Recovered/Resolved]
  - Renal failure [Fatal]
  - Dyspnoea [Not Recovered/Not Resolved]
  - Cholecystectomy [Unknown]
  - Hospice care [Unknown]
  - Cardiac failure congestive [Fatal]
  - Stent placement [Recovered/Resolved]
  - Arterial disorder [Unknown]
  - Renal disorder [Unknown]

NARRATIVE: CASE EVENT DATE: 2013
